FAERS Safety Report 11164087 (Version 1)
Quarter: 2015Q2

REPORT INFORMATION
  Report Type: Spontaneous
  Country: CA (occurrence: CA)
  Receive Date: 20150604
  Receipt Date: 20150604
  Transmission Date: 20150821
  Serious: Yes (Hospitalization, Other)
  Sender: FDA-Public Use
  Company Number: US-SUN PHARMACEUTICAL INDUSTRIES LTD-2015US-96890

PATIENT
  Age: 64 Year
  Sex: Male

DRUGS (2)
  1. DICLOFENAC/MISOPROSTOL [Concomitant]
     Indication: OSTEOARTHRITIS
     Dosage: 50MG 2-3 TIMES DAILY
     Route: 065
  2. DONEPEZIL [Suspect]
     Active Substance: DONEPEZIL
     Indication: PRODUCT USED FOR UNKNOWN INDICATION
     Dosage: UNK
     Route: 065

REACTIONS (2)
  - Mania [Recovering/Resolving]
  - Self-medication [Recovering/Resolving]
